FAERS Safety Report 10881903 (Version 1)
Quarter: 2015Q1

REPORT INFORMATION
  Report Type: Spontaneous
  Country: US (occurrence: None)
  Receive Date: 20150227
  Receipt Date: 20150227
  Transmission Date: 20150721
  Serious: Yes (Other)
  Sender: FDA-Public Use
  Company Number: None

PATIENT
  Age: 76 Year
  Sex: Male

DRUGS (5)
  1. OCUVITE [Concomitant]
     Active Substance: VITAMINS
  2. NEUPOGEN [Concomitant]
     Active Substance: FILGRASTIM
  3. CELEBREX [Concomitant]
     Active Substance: CELECOXIB
  4. EXJADE [Suspect]
     Active Substance: DEFERASIROX
     Indication: IRON METABOLISM DISORDER
     Dosage: 2000 MG (4 TABS), Q DAILY, ORAL
     Route: 048
     Dates: start: 20140825, end: 20150226
  5. CHEWABLE BABY ASPIRIN [Concomitant]

REACTIONS (1)
  - Rash pruritic [None]

NARRATIVE: CASE EVENT DATE: 20150119
